FAERS Safety Report 12999897 (Version 1)
Quarter: 2016Q4

REPORT INFORMATION
  Report Type: Spontaneous
  Country: US (occurrence: US)
  Receive Date: 20161205
  Receipt Date: 20161205
  Transmission Date: 20170207
  Serious: No
  Sender: FDA-Public Use
  Company Number: US-JUBILANT CADISTA PHARMACEUTICALS-2016JUB00218

PATIENT
  Age: 45 Year
  Sex: Male
  Weight: 65.76 kg

DRUGS (2)
  1. PROTEIN SHAKE [Concomitant]
  2. METHYLPREDNISOLONE. [Suspect]
     Active Substance: METHYLPREDNISOLONE
     Indication: TENDON INJURY
     Dosage: UNK, AS NEEDED
     Route: 048
     Dates: start: 20160610

REACTIONS (1)
  - Blood glucose increased [Recovered/Resolved]

NARRATIVE: CASE EVENT DATE: 20160610
